FAERS Safety Report 22264475 (Version 2)
Quarter: 2023Q2

REPORT INFORMATION
  Report Type: Spontaneous
  Country: HU (occurrence: None)
  Receive Date: 20230428
  Receipt Date: 20230504
  Transmission Date: 20230721
  Serious: Yes (Death, Life-Threatening, Other)
  Sender: FDA-Public Use
  Company Number: HU-ROCHE-3335419

PATIENT
  Sex: Male
  Weight: 74 kg

DRUGS (1)
  1. OBINUTUZUMAB [Suspect]
     Active Substance: OBINUTUZUMAB
     Indication: Chronic lymphocytic leukaemia
     Route: 042

REACTIONS (21)
  - Anaphylactic reaction [Unknown]
  - Tumour lysis syndrome [Unknown]
  - Confusional state [Unknown]
  - Hypoxia [Unknown]
  - Blood lactate dehydrogenase increased [Unknown]
  - Brain hypoxia [Unknown]
  - Peripheral swelling [Unknown]
  - Hydrothorax [Unknown]
  - Lung disorder [Unknown]
  - Lymphadenopathy [Unknown]
  - Hepatosplenomegaly [Unknown]
  - Dyspnoea [Unknown]
  - Cardiac arrest [Unknown]
  - Bundle branch block right [Unknown]
  - Coma [Unknown]
  - Multiple organ dysfunction syndrome [Unknown]
  - Seizure [Unknown]
  - Cardiac arrest [Fatal]
  - Pulmonary congestion [Unknown]
  - Hypotension [Unknown]
  - Sinus bradycardia [Unknown]
